FAERS Safety Report 20072040 (Version 4)
Quarter: 2021Q4

REPORT INFORMATION
  Report Type: Report from Study
  Country: JP (occurrence: JP)
  Receive Date: 20211116
  Receipt Date: 20211203
  Transmission Date: 20220303
  Serious: Yes (Hospitalization, Other)
  Sender: FDA-Public Use
  Company Number: JP-BRISTOL-MYERS SQUIBB COMPANY-BMS-2021-068301

PATIENT
  Age: 71 Year
  Sex: Female
  Weight: 55 kg

DRUGS (54)
  1. NIVOLUMAB [Suspect]
     Active Substance: NIVOLUMAB
     Indication: Pancreatic carcinoma
     Dosage: 480 MILLIGRAM, Q4WK
     Route: 041
     Dates: start: 20210629
  2. GIMERACIL\OTERACIL\TEGAFUR [Suspect]
     Active Substance: GIMERACIL\OTERACIL\TEGAFUR
     Indication: Pancreatic carcinoma
     Dosage: 50 MILLIGRAM, Q12H
     Route: 048
     Dates: start: 20210629, end: 20210704
  3. GIMERACIL\OTERACIL\TEGAFUR [Suspect]
     Active Substance: GIMERACIL\OTERACIL\TEGAFUR
     Dosage: UNK UNK, Q12H (TABLET, ORALLY DISINTEGRATING)
     Route: 048
     Dates: end: 20210820
  4. ELIQUIS [Suspect]
     Active Substance: APIXABAN
     Indication: Ovarian vein thrombosis
     Dosage: 5 MILLIGRAM, Q12H
     Route: 048
     Dates: start: 20211019, end: 20211103
  5. ACETAMINOPHEN\TRAMADOL HYDROCHLORIDE [Concomitant]
     Active Substance: ACETAMINOPHEN\TRAMADOL HYDROCHLORIDE
     Indication: Cancer pain
     Dosage: 1 DOSAGE FORM, Q6H
     Route: 048
     Dates: start: 20210610, end: 20210715
  6. NEXIUM [Concomitant]
     Active Substance: ESOMEPRAZOLE MAGNESIUM
     Indication: Gastritis prophylaxis
     Dosage: 20 MILLIGRAM, QD
     Route: 048
     Dates: start: 20210520, end: 20211103
  7. NEXIUM [Concomitant]
     Active Substance: ESOMEPRAZOLE MAGNESIUM
     Indication: Gastritis erosive
     Dosage: 20 MILLIGRAM, QD
     Route: 048
     Dates: start: 20211109
  8. PANCRELIPASE [Concomitant]
     Active Substance: PANCRELIPASE
     Indication: Prophylaxis
     Dosage: 4 DOSAGE FORM, Q8H
     Route: 048
     Dates: start: 20210617
  9. PANCRELIPASE [Concomitant]
     Active Substance: PANCRELIPASE
     Dosage: 4 DOSAGE FORM, Q8H
     Route: 048
     Dates: start: 20210827, end: 20211103
  10. PANCRELIPASE [Concomitant]
     Active Substance: PANCRELIPASE
     Dosage: 4 DOSAGE FORM, Q8H
     Route: 048
     Dates: start: 20211109
  11. LOXOPROFEN [Concomitant]
     Active Substance: LOXOPROFEN
     Indication: Cancer pain
     Dosage: 60 MILLIGRAM, PRN
     Route: 048
     Dates: start: 20210520, end: 20210710
  12. ATORVASTATIN [Concomitant]
     Active Substance: ATORVASTATIN
     Indication: Hyperlipidaemia
     Dosage: 5 MILLIGRAM, QD
     Route: 048
     Dates: start: 200802, end: 20210714
  13. AMLODIPINE [Concomitant]
     Active Substance: AMLODIPINE BESYLATE
     Indication: Hypertension
     Dosage: 2.5 MILLIGRAM, QD
     Route: 048
     Dates: start: 200502, end: 20210715
  14. CANDESARTAN CILEXETIL\HYDROCHLOROTHIAZIDE [Concomitant]
     Active Substance: CANDESARTAN CILEXETIL\HYDROCHLOROTHIAZIDE
     Indication: Hypertension
     Dosage: 1 DOSAGE FORM, QD
     Route: 048
     Dates: start: 201109, end: 20210715
  15. ENSURE [Concomitant]
     Active Substance: AMINO ACIDS\DEXTROSE\ELECTROLYTES NOS\SOYBEAN OIL\VITAMINS
     Indication: Decreased appetite
     Dosage: 100 MILLILITER, PRN
     Route: 048
     Dates: start: 20210613, end: 20210707
  16. AMINO ACIDS\CARBOHYDRATES\MINERALS\SOYBEAN OIL\VITAMINS [Concomitant]
     Active Substance: AMINO ACIDS\CARBOHYDRATES\MINERALS\SOYBEAN OIL\VITAMINS
     Indication: Decreased appetite
     Dosage: 80 MILLIGRAM, PRN, POWDER (EXCEPT DPO)
     Route: 048
     Dates: start: 20210616, end: 20210707
  17. NAUZELIN [Concomitant]
     Active Substance: DOMPERIDONE
     Indication: Nausea
     Dosage: 10 MILLIGRAM, Q8H,  ORALLY DISINTEGRATING
     Route: 048
     Dates: start: 20210705, end: 20211103
  18. NAUZELIN [Concomitant]
     Active Substance: DOMPERIDONE
     Dosage: 10 MILLIGRAM, Q8H,  ORALLY DISINTEGRATING
     Route: 048
     Dates: start: 20211109
  19. POLAPREZINC [Concomitant]
     Active Substance: POLAPREZINC
     Indication: Taste disorder
     Dosage: 75 MILLIGRAM, Q12H,  ORALLY DISINTEGRATING
     Route: 048
     Dates: start: 20210705, end: 20210714
  20. POLAPREZINC [Concomitant]
     Active Substance: POLAPREZINC
     Dosage: 75 MILLIGRAM, Q12H,  ORALLY DISINTEGRATING
     Route: 048
     Dates: start: 20210823, end: 20211103
  21. POLAPREZINC [Concomitant]
     Active Substance: POLAPREZINC
     Dosage: 75 MILLIGRAM, Q12H,  ORALLY DISINTEGRATING
     Route: 048
     Dates: start: 20211109
  22. AZ [SODIUM BICARBONATE;SODIUM GUALENATE HYDRATE] [Concomitant]
     Indication: Prophylaxis
     Dosage: 2 G, PRN
     Route: 002
     Dates: start: 20210629, end: 20211103
  23. AZ [SODIUM BICARBONATE;SODIUM GUALENATE HYDRATE] [Concomitant]
     Dosage: 75 MILLIGRAM, Q12H, POWDER (EXCEPT DPO)
     Route: 002
     Dates: start: 20210705
  24. AZ [SODIUM BICARBONATE;SODIUM GUALENATE HYDRATE] [Concomitant]
     Indication: Prophylaxis
  25. AZ [SODIUM BICARBONATE;SODIUM GUALENATE HYDRATE] [Concomitant]
     Indication: Prophylaxis
  26. DOMPERIDONE [Concomitant]
     Active Substance: DOMPERIDONE
     Indication: Nausea
     Dosage: 10 MILLIGRAM, Q8H
     Route: 048
     Dates: start: 20210630, end: 20210714
  27. OXYCODONE HYDROCHLORIDE [Concomitant]
     Active Substance: OXYCODONE HYDROCHLORIDE
     Indication: Cancer pain
     Dosage: 5 MILLIGRAM, QD
     Route: 048
     Dates: start: 20210716, end: 20211103
  28. OXYCODONE HYDROCHLORIDE [Concomitant]
     Active Substance: OXYCODONE HYDROCHLORIDE
     Dosage: 5 MILLIGRAM, QD
     Route: 048
     Dates: start: 20211109
  29. OXYCODONE HYDROCHLORIDE [Concomitant]
     Active Substance: OXYCODONE HYDROCHLORIDE
     Indication: Cancer pain
     Dosage: 5 MG, PRN
     Route: 048
     Dates: start: 20210720, end: 20211103
  30. OXYCODONE HYDROCHLORIDE [Concomitant]
     Active Substance: OXYCODONE HYDROCHLORIDE
     Dosage: 5 MG, PRN
     Route: 048
     Dates: start: 20211109
  31. SYMPROIC [Concomitant]
     Active Substance: NALDEMEDINE
     Indication: Constipation
     Dosage: 0.2 MG, PRN
     Route: 048
     Dates: start: 20210719, end: 20211103
  32. SYMPROIC [Concomitant]
     Active Substance: NALDEMEDINE
     Dosage: 0.2 MG, PRN
     Route: 048
     Dates: start: 20211109
  33. SULFAMETHOXAZOLE\TRIMETHOPRIM [Concomitant]
     Active Substance: SULFAMETHOXAZOLE\TRIMETHOPRIM
     Indication: Hepatic function abnormal
     Dosage: 1 DOSAGE FORM, QD
     Route: 048
     Dates: start: 20210824, end: 20211103
  34. SULFAMETHOXAZOLE\TRIMETHOPRIM [Concomitant]
     Active Substance: SULFAMETHOXAZOLE\TRIMETHOPRIM
     Dosage: 1 DOSAGE FORM, QD
     Route: 048
     Dates: start: 20211109
  35. MAGNESIUM OXIDE [Concomitant]
     Active Substance: MAGNESIUM OXIDE
     Indication: Constipation
     Dosage: 330 MILLIGRAM, Q8H
     Route: 048
     Dates: start: 20210823, end: 20211103
  36. MAGNESIUM OXIDE [Concomitant]
     Active Substance: MAGNESIUM OXIDE
     Dosage: 330 MILLIGRAM, Q8H
     Route: 048
     Dates: start: 20211109
  37. PREDONINE [Concomitant]
     Active Substance: PREDNISOLONE
     Indication: Hepatic function abnormal
     Dosage: 5 MILLIGRAM, Q12H
     Route: 048
     Dates: start: 20210903, end: 20211103
  38. PREDONINE [Concomitant]
     Active Substance: PREDNISOLONE
     Dosage: 5 MILLIGRAM, Q12H
     Route: 048
     Dates: start: 20211109
  39. BIO-THREE [Concomitant]
     Active Substance: HERBALS
     Indication: Constipation
     Dosage: 1 GRAM, Q8H
     Route: 048
     Dates: start: 20210824, end: 20211103
  40. BIO-THREE [Concomitant]
     Active Substance: HERBALS
     Dosage: 1 GRAM, Q8H
     Route: 048
     Dates: start: 20211109
  41. ROSUVASTATIN [Concomitant]
     Active Substance: ROSUVASTATIN
     Indication: Hyperlipidaemia
     Dosage: 2.5 MILLIGRAM, QD
     Route: 048
     Dates: start: 20211005, end: 20211103
  42. ROSUVASTATIN [Concomitant]
     Active Substance: ROSUVASTATIN
     Dosage: 2.5 MILLIGRAM, QD
     Route: 048
     Dates: start: 20211109
  43. URSODIOL [Concomitant]
     Active Substance: URSODIOL
     Indication: Hepatic function abnormal
     Dosage: 100 MILLIGRAM, Q8H
     Route: 048
     Dates: start: 20211005, end: 20211103
  44. URSODIOL [Concomitant]
     Active Substance: URSODIOL
     Dosage: 100 MILLIGRAM, Q8H
     Route: 048
     Dates: start: 20211109
  45. RISEDRONATE SODIUM [Concomitant]
     Active Substance: RISEDRONATE SODIUM
     Indication: Osteoporosis prophylaxis
     Dosage: 75 MILLIGRAM, Q12H
     Route: 048
     Dates: start: 20210716, end: 20211103
  46. RISEDRONATE SODIUM [Concomitant]
     Active Substance: RISEDRONATE SODIUM
     Dosage: 75 MILLIGRAM, Q12H
     Route: 048
     Dates: start: 20211109
  47. JANUVIA [Concomitant]
     Active Substance: SITAGLIPTIN PHOSPHATE
     Indication: Hyperglycaemia
     Dosage: 50 MILLIGRAM
     Route: 048
     Dates: start: 20211007, end: 20211103
  48. JANUVIA [Concomitant]
     Active Substance: SITAGLIPTIN PHOSPHATE
     Dosage: 50 MILLIGRAM
     Route: 048
     Dates: start: 20211109
  49. METGLUCO [Concomitant]
     Active Substance: METFORMIN HYDROCHLORIDE
     Indication: Hyperglycaemia
     Dosage: 500 MG, GEMCITABINE ADMINISTRATION DATE
     Route: 048
     Dates: start: 20211026, end: 20211103
  50. METGLUCO [Concomitant]
     Active Substance: METFORMIN HYDROCHLORIDE
     Dosage: 500 MG, GEMCITABINE ADMINISTRATION DATE
     Route: 048
     Dates: start: 20211109
  51. DEXAMETHASONE [Concomitant]
     Active Substance: DEXAMETHASONE
     Indication: Angular cheilitis
     Dosage: APPROPRIATE AMOUNT, PRN
     Route: 061
     Dates: start: 20211102, end: 20211103
  52. DEXAMETHASONE SODIUM PHOSPHATE [Concomitant]
     Active Substance: DEXAMETHASONE SODIUM PHOSPHATE
     Indication: Prophylaxis
     Dosage: 6.6 MG, BEFORE ADMINISTRATION OF GEMCITABINE
     Route: 042
     Dates: start: 20210907
  53. GRANISETRON [Concomitant]
     Active Substance: GRANISETRON
     Indication: Prophylaxis
     Dosage: 1 MG, BEFORE ADMINISTRATION OF GEMCITABINE
     Route: 042
     Dates: start: 20210907
  54. GEMZAR [Concomitant]
     Active Substance: GEMCITABINE HYDROCHLORIDE
     Indication: Pancreatic carcinoma
     Dosage: 1500 MG, 3 WEEKS ON AND 1 WEEK OFF
     Route: 042
     Dates: start: 20210907

REACTIONS (2)
  - Decreased appetite [Recovered/Resolved]
  - Gastric ulcer haemorrhage [Recovered/Resolved]

NARRATIVE: CASE EVENT DATE: 20210708
